FAERS Safety Report 25407584 (Version 1)
Quarter: 2025Q2

REPORT INFORMATION
  Report Type: Spontaneous
  Country: US (occurrence: None)
  Receive Date: 20250605
  Receipt Date: 20250605
  Transmission Date: 20250716
  Serious: Yes (Hospitalization, Disabling, Other)
  Sender: FDA-CTU
  Company Number: None

PATIENT
  Age: 41 Year
  Sex: Female
  Weight: 58.5 kg

DRUGS (9)
  1. PROZAC [Suspect]
     Active Substance: FLUOXETINE HYDROCHLORIDE
     Indication: Anxiety
  2. PROZAC [Suspect]
     Active Substance: FLUOXETINE HYDROCHLORIDE
     Indication: Depression
  3. ZOLOFT [Suspect]
     Active Substance: SERTRALINE HYDROCHLORIDE
  4. LUVOX [Suspect]
     Active Substance: FLUVOXAMINE MALEATE
  5. WELLBUTRIN [Suspect]
     Active Substance: BUPROPION HYDROCHLORIDE
  6. VIIBRYD [Suspect]
     Active Substance: VILAZODONE HYDROCHLORIDE
  7. TRINTELLIX [Suspect]
     Active Substance: VORTIOXETINE HYDROBROMIDE
  8. ABILIFY [Suspect]
     Active Substance: ARIPIPRAZOLE
  9. LAMICTAL [Concomitant]
     Active Substance: LAMOTRIGINE

REACTIONS (14)
  - Apathy [None]
  - Panic attack [None]
  - Anxiety [None]
  - Headache [None]
  - Electric shock sensation [None]
  - Akathisia [None]
  - Crying [None]
  - Nausea [None]
  - Vomiting [None]
  - Night sweats [None]
  - Nightmare [None]
  - Tremor [None]
  - Suicidal behaviour [None]
  - Withdrawal syndrome [None]
